FAERS Safety Report 9499041 (Version 1)
Quarter: 2013Q3

REPORT INFORMATION
  Report Type: Spontaneous
  Country: FR (occurrence: FR)
  Receive Date: 20130904
  Receipt Date: 20130904
  Transmission Date: 20140515
  Serious: Yes (Hospitalization)
  Sender: FDA-Public Use
  Company Number: FR-PFIZER INC-2013252121

PATIENT
  Age: 63 Year
  Sex: Male

DRUGS (20)
  1. VANCOMYCIN HCL [Suspect]
     Indication: STAPHYLOCOCCAL INFECTION
     Dosage: UNK, AFTER DIALYSIS
     Route: 042
     Dates: start: 20130725, end: 20130803
  2. VANCOMYCIN HCL [Suspect]
     Indication: PSEUDOMONAS INFECTION
  3. CLAVENTIN [Suspect]
     Indication: STAPHYLOCOCCAL INFECTION
     Dosage: 3 G THE DAY OF DIALYSIS, UNK
     Route: 042
     Dates: start: 20130725, end: 20130804
  4. CLAVENTIN [Suspect]
     Indication: PSEUDOMONAS INFECTION
     Dosage: 1.5 G THE DAYS OF NO DIALYSIS, UNK
     Route: 042
     Dates: start: 20130725, end: 20130804
  5. FLUINDIONE [Suspect]
     Indication: ATRIAL FLUTTER
     Dosage: UNK
     Route: 048
     Dates: start: 20130726, end: 20130805
  6. CORDARONE [Concomitant]
     Indication: ATRIAL FLUTTER
     Dosage: SINGLE DOSE OF 2 AMPOULES
     Dates: start: 20130725, end: 20130725
  7. BISOPROLOL [Concomitant]
     Dosage: UNK
     Dates: start: 20130726
  8. CARBAMAZEPINE [Concomitant]
     Dosage: UNK
     Dates: start: 201211
  9. LASILIX [Concomitant]
     Dosage: UNK
  10. ATORVASTATIN CALCIUM [Concomitant]
     Dosage: UNK
  11. INIPOMP [Concomitant]
     Dosage: UNK
  12. LYRICA [Concomitant]
     Dosage: UNK
  13. TOPALGIC [Concomitant]
     Dosage: UNK
  14. PHOSPHOSORB [Concomitant]
     Dosage: UNK
  15. LEVOTHYROX [Concomitant]
     Dosage: UNK
  16. RIVOTRIL [Concomitant]
     Dosage: UNK
  17. ANDROTARDYL [Concomitant]
     Dosage: UNK
  18. INSULIN [Concomitant]
     Dosage: UNK
  19. PARACETAMOL [Concomitant]
     Dosage: UNK
  20. GENTAMICIN SULFATE [Concomitant]
     Dosage: UNK
     Dates: end: 20130730

REACTIONS (9)
  - Toxic skin eruption [Unknown]
  - Rash maculo-papular [Recovering/Resolving]
  - Rash generalised [Recovering/Resolving]
  - Pruritus [Unknown]
  - Aspartate aminotransferase increased [Recovering/Resolving]
  - Alanine aminotransferase increased [Unknown]
  - Blood alkaline phosphatase increased [Unknown]
  - Gamma-glutamyltransferase increased [Unknown]
  - Eosinophilia [Recovered/Resolved]
